FAERS Safety Report 8508845-3 (Version None)
Quarter: 2012Q3

REPORT INFORMATION
  Report Type: 
  Country: None (occurrence: None)
  Receive Date: 20120713
  Receipt Date: 20120711
  Transmission Date: 20120928
  Serious: Yes (Hospitalization, Other)
  Sender: FDA-Public Use
  Company Number: US-PFIZER INC-2011158313

PATIENT
  Age: 80 Year
  Sex: Male

DRUGS (7)
  1. AMIODARONE HCL [Suspect]
     Indication: CARDIAC FAILURE ACUTE
  2. HEPARIN [Suspect]
     Dosage: UNK
     Route: 065
  3. AMIODARONE HCL [Suspect]
     Indication: ATRIAL FIBRILLATION
  4. AMIODARONE HCL [Suspect]
     Indication: ATRIAL FIBRILLATION
  5. AMIODARONE HYDROCHLORIDE [Suspect]
     Indication: CARDIAC FAILURE ACUTE
  6. AMIODARONE HYDROCHLORIDE [Suspect]
     Indication: VENTRICULAR TACHYCARDIA
     Dosage: UNK
     Route: 042
  7. AMIODARONE HCL [Suspect]
     Indication: VENTRICULAR TACHYCARDIA
     Dosage: UNK
     Route: 050

REACTIONS (2)
  - HYPOTHYROIDISM [None]
  - HEPARIN-INDUCED THROMBOCYTOPENIA [None]
